FAERS Safety Report 16449176 (Version 1)
Quarter: 2019Q2

REPORT INFORMATION
  Report Type: Spontaneous
  Country: US (occurrence: US)
  Receive Date: 20190508
  Receipt Date: 20190508
  Transmission Date: 20190711
  Serious: Yes (Other)
  Sender: FDA-Public Use
  Company Number: None

PATIENT
  Age: 57 Year
  Sex: Male
  Weight: 72.57 kg

DRUGS (5)
  1. SIROLIMUS. [Concomitant]
     Active Substance: SIROLIMUS
  2. TACROLIMUS. [Concomitant]
     Active Substance: TACROLIMUS
  3. METOPROLOL TARTRATE. [Suspect]
     Active Substance: METOPROLOL TARTRATE
     Indication: CARDIAC DISORDER
     Dosage: ?          QUANTITY:1 ;?
     Route: 048
     Dates: start: 20190419, end: 20190421
  4. PREDNISONE. [Concomitant]
     Active Substance: PREDNISONE
  5. FISH OIL [Concomitant]
     Active Substance: FISH OIL

REACTIONS (6)
  - Insomnia [None]
  - Nightmare [None]
  - Dizziness [None]
  - Vision blurred [None]
  - Nausea [None]
  - Pain [None]
